FAERS Safety Report 5343995-4 (Version None)
Quarter: 2007Q2

REPORT INFORMATION
  Report Type: 
  Country: None (occurrence: None)
  Receive Date: 20070604
  Receipt Date: 20070521
  Transmission Date: 20071010
  Serious: Yes (Hospitalization)
  Sender: FDA-Public Use
  Company Number: JP-PURDUE-MAG_2007_0000540

PATIENT
  Age: 56 Year
  Sex: Female

DRUGS (30)
  1. OXYCODONE HCL [Suspect]
     Indication: CANCER PAIN
     Dosage: 10 MG, BID
     Route: 048
     Dates: start: 20050418, end: 20050422
  2. OXYCODONE HCL [Suspect]
     Dosage: 5 MG, DAILY
     Route: 048
     Dates: start: 20050423, end: 20051103
  3. OXYCODONE HCL [Suspect]
     Dosage: 10 MG, BID
     Route: 048
     Dates: start: 20051104, end: 20051124
  4. OXYCODONE HCL [Suspect]
     Dosage: 15 MG, TID
     Route: 048
     Dates: start: 20051125, end: 20051129
  5. OXYCODONE HCL [Suspect]
     Dosage: 20 MG, QID
     Route: 048
     Dates: start: 20051130, end: 20060213
  6. OXYCODONE HCL [Suspect]
     Dosage: 40 MG, BID
     Route: 048
     Dates: start: 20060214, end: 20060314
  7. OXYCODONE HCL [Suspect]
     Dosage: 80 MG, BID
     Route: 048
     Dates: start: 20060315, end: 20060501
  8. OXYCODONE HCL [Suspect]
     Dosage: 90 MG, BID
     Route: 048
     Dates: start: 20060502, end: 20060524
  9. OXYCODONE HCL [Suspect]
     Dosage: 120 MG, TID
     Route: 048
     Dates: start: 20060525, end: 20060531
  10. OXYCODONE HCL [Suspect]
     Dosage: 240 MG, TID
     Route: 048
     Dates: start: 20060601, end: 20060614
  11. OXYCODONE HCL [Suspect]
     Dosage: 300 MG, TID
     Route: 048
     Dates: start: 20060615, end: 20060621
  12. OXYCODONE HCL [Suspect]
     Dosage: 420 MG, TID
     Route: 048
     Dates: start: 20060622, end: 20060705
  13. OXYCODONE HCL [Suspect]
     Dosage: 480 MG, TID
     Route: 048
     Dates: start: 20060706, end: 20060726
  14. LASIX [Concomitant]
     Indication: BREAST CANCER
     Dosage: 40 MG, DAILY
     Route: 048
     Dates: start: 20050428, end: 20050530
  15. NAVELBINE [Concomitant]
     Indication: BREAST CANCER
     Dosage: 40 MG, DAILY
     Route: 042
     Dates: start: 20050613
  16. MORPHINE [Concomitant]
     Indication: CANCER PAIN
     Dosage: UNK, UNK
     Route: 048
     Dates: start: 20051128
  17. PURSENNID [Concomitant]
     Indication: CONSTIPATION PROPHYLAXIS
     Dosage: 24 MG, DAILY
     Route: 048
     Dates: start: 20051130
  18. NOVAMIN [Concomitant]
     Indication: PROPHYLAXIS OF NAUSEA AND VOMITING
     Dosage: 15 MG, DAILY
     Route: 048
     Dates: start: 20051130
  19. AMITRIPTYLINE HYDROCHLORIDE [Concomitant]
     Indication: CANCER PAIN
     Dosage: 25 MG, DAILY
     Route: 048
     Dates: start: 20051130
  20. TRYPTANOL [Concomitant]
     Indication: CANCER PAIN
     Dosage: 10 MG, DAILY
     Route: 048
     Dates: start: 20051212
  21. CEFZON [Concomitant]
     Indication: BREAST CANCER
     Dosage: 300 MG, DAILY
     Route: 048
     Dates: start: 20051219, end: 20051226
  22. UNASYN ORAL TABLET [Concomitant]
     Indication: BREAST CANCER
     Dosage: 1125 MG, DAILY
     Route: 048
     Dates: start: 20051226, end: 20060101
  23. HYPEN [Concomitant]
     Indication: CANCER PAIN
     Dosage: 400 MG, DAILY
     Route: 048
     Dates: start: 20051226, end: 20060728
  24. HYPEN [Concomitant]
     Dosage: 400 MG, DAILY
     Route: 048
     Dates: start: 20050413, end: 20050420
  25. LEVOFLOXACIN [Concomitant]
     Indication: BREAST CANCER
     Dosage: 300 MG, DAILY
     Route: 048
     Dates: start: 20060111, end: 20060118
  26. TS-1 [Concomitant]
     Indication: BREAST CANCER
     Dosage: 120 MG, DAILY
     Route: 048
     Dates: start: 20060118, end: 20060728
  27. VOLTAREN [Concomitant]
     Indication: CANCER PAIN
     Dosage: 50 MG, DAILY
     Route: 054
     Dates: start: 20060329, end: 20060728
  28. ADONA [Concomitant]
     Indication: BREAST CANCER
     Dosage: 90 MG, DAILY
     Route: 048
     Dates: start: 20060430, end: 20060506
  29. TRANSAMIN [Concomitant]
     Indication: BREAST CANCER
     Dosage: 750 MG, DAILY
     Route: 042
     Dates: start: 20060430, end: 20060506
  30. XELODA [Concomitant]
     Indication: BREAST CANCER
     Dosage: 2400 MG, DAILY
     Route: 048
     Dates: start: 20050413, end: 20050612

REACTIONS (3)
  - CONSTIPATION [None]
  - RADIATION SKIN INJURY [None]
  - SOMNOLENCE [None]
